FAERS Safety Report 8227931-9 (Version None)
Quarter: 2012Q1

REPORT INFORMATION
  Report Type: 
  Country: None (occurrence: None)
  Receive Date: 20120322
  Receipt Date: 20120321
  Transmission Date: 20120608
  Serious: Yes (Death, Other)
  Sender: FDA-Public Use
  Company Number: PHHY2012DE024606

PATIENT
  Age: 3 Year

DRUGS (4)
  1. THIOTEPA [Suspect]
     Indication: MEDULLOBLASTOMA
  2. CYCLOPHOSPHAMIDE [Suspect]
     Indication: MEDULLOBLASTOMA
  3. ETOPOSIDE [Suspect]
     Indication: MEDULLOBLASTOMA
  4. CARBOPLATIN [Suspect]
     Indication: MEDULLOBLASTOMA

REACTIONS (6)
  - HYPERCAPNIA [None]
  - ACUTE RESPIRATORY DISTRESS SYNDROME [None]
  - PNEUMOTHORAX [None]
  - RESPIRATORY FAILURE [None]
  - PNEUMOMEDIASTINUM [None]
  - DEATH [None]
